FAERS Safety Report 12663231 (Version 1)
Quarter: 2016Q3

REPORT INFORMATION
  Report Type: Report from Study
  Country: US (occurrence: US)
  Receive Date: 20160818
  Receipt Date: 20160818
  Transmission Date: 20161109
  Serious: Yes (Hospitalization, Other)
  Sender: FDA-Public Use
  Company Number: US-ROCHE-769796

PATIENT
  Age: 25 Year
  Sex: Male
  Weight: 95.2 kg

DRUGS (3)
  1. VISMODEGIB [Suspect]
     Active Substance: VISMODEGIB
     Indication: BONE CANCER
     Route: 048
     Dates: start: 20100812, end: 20100904
  2. RO 4929097 (GAMMA SECRETASE INHIBITOR) [Suspect]
     Active Substance: INVESTIGATIONAL PRODUCT
     Indication: BONE CANCER
     Dosage: LAST DOSE RECEIVED ON 08/SEP/2010
     Route: 048
  3. RO 4929097 (GAMMA SECRETASE INHIBITOR) [Suspect]
     Active Substance: INVESTIGATIONAL PRODUCT
     Route: 048

REACTIONS (7)
  - Small intestinal obstruction [Unknown]
  - Dysphagia [Unknown]
  - Lymphocyte count decreased [Unknown]
  - Hyperglycaemia [Unknown]
  - Hypophosphataemia [Unknown]
  - Urinary tract infection [Unknown]
  - Neck pain [Unknown]

NARRATIVE: CASE EVENT DATE: 20100909
